FAERS Safety Report 11949229 (Version 1)
Quarter: 2016Q1

REPORT INFORMATION
  Report Type: Spontaneous
  Country: DE (occurrence: DE)
  Receive Date: 20160125
  Receipt Date: 20160125
  Transmission Date: 20160526
  Serious: Yes (Other)
  Sender: FDA-Public Use
  Company Number: DE-ALLERGAN-1601261US

PATIENT
  Sex: Female

DRUGS (2)
  1. OZURDEX [Suspect]
     Active Substance: DEXAMETHASONE
     Dosage: 0.7 MG, SINGLE
     Route: 031
     Dates: start: 20151116, end: 20151116
  2. OZURDEX [Suspect]
     Active Substance: DEXAMETHASONE
     Indication: UVEITIS
     Dosage: 0.7 MG, SINGLE
     Route: 031

REACTIONS (6)
  - Vision blurred [Unknown]
  - Contraindicated drug administered [Unknown]
  - Cataract [Unknown]
  - Posterior capsule rupture [Unknown]
  - Intraocular pressure increased [Recovering/Resolving]
  - Complication of device insertion [Unknown]

NARRATIVE: CASE EVENT DATE: 2015
